FAERS Safety Report 18591333 (Version 1)
Quarter: 2020Q4

REPORT INFORMATION
  Report Type: Spontaneous
  Country: CA (occurrence: CA)
  Receive Date: 20201208
  Receipt Date: 20201208
  Transmission Date: 20210114
  Serious: Yes (Other)
  Sender: FDA-Public Use
  Company Number: CA-JNJFOC-20201151924

PATIENT
  Age: 10 Year
  Sex: Female
  Weight: 11 kg

DRUGS (5)
  1. LEVOCARNITINE HYDROCHLORIDE [Concomitant]
     Active Substance: LEVOCARNITINE HYDROCHLORIDE
     Route: 065
  2. VALPROIC ACID. [Suspect]
     Active Substance: VALPROIC ACID
     Indication: SEIZURE
     Route: 065
  3. CALCIUM CARBONATE. [Concomitant]
     Active Substance: CALCIUM CARBONATE
     Indication: PRODUCT USED FOR UNKNOWN INDICATION
     Route: 065
  4. LANSOPRAZOLE. [Concomitant]
     Active Substance: LANSOPRAZOLE
  5. TOPAMAX [Suspect]
     Active Substance: TOPIRAMATE
     Indication: SEIZURE
     Route: 048

REACTIONS (9)
  - Fanconi syndrome [Unknown]
  - Metabolic acidosis [Unknown]
  - Glycosuria [Unknown]
  - Renal tubular acidosis [Unknown]
  - Blood alkaline phosphatase increased [Unknown]
  - Proteinuria [Unknown]
  - Hypophosphataemic osteomalacia [Unknown]
  - Nephrocalcinosis [Unknown]
  - Urine calcium/creatinine ratio increased [Unknown]
